FAERS Safety Report 23076725 (Version 2)
Quarter: 2023Q4

REPORT INFORMATION
  Report Type: Report from Study
  Country: CN (occurrence: CN)
  Receive Date: 20231017
  Receipt Date: 20231024
  Transmission Date: 20240110
  Serious: No
  Sender: FDA-Public Use
  Company Number: CN-ABBVIE-5401114

PATIENT
  Age: 45 Year
  Sex: Female
  Weight: 47 kg

DRUGS (11)
  1. HUMIRA [Suspect]
     Active Substance: ADALIMUMAB
     Indication: Crohn^s disease
     Dosage: FORM STRENGTH: 40 MILLIGRAM
     Route: 058
     Dates: start: 20230303, end: 20230303
  2. HUMIRA [Suspect]
     Active Substance: ADALIMUMAB
     Dosage: FORM STRENGTH: 40 MILLIGRAM?ONCE
     Route: 058
     Dates: start: 20230403, end: 20230904
  3. HUMIRA [Suspect]
     Active Substance: ADALIMUMAB
     Dosage: FORM STRENGTH: 40 MILLIGRAM?ONCE
     Route: 058
     Dates: start: 20230318, end: 20230318
  4. PROPOFOL [Concomitant]
     Active Substance: PROPOFOL
     Indication: Colonoscopy
     Dosage: 0.2 GRAM
     Route: 042
     Dates: start: 20230621, end: 20230621
  5. FENTANYL CITRATE [Concomitant]
     Active Substance: FENTANYL CITRATE
     Indication: Colonoscopy
     Dosage: 0.05 MILLIGRAM
     Route: 042
     Dates: start: 20230621, end: 20230621
  6. DIMETHICONE [Concomitant]
     Active Substance: DIMETHICONE
     Indication: Colonoscopy
     Dosage: EMULSION?6 MILLILITER
     Route: 048
     Dates: start: 20230621, end: 20230621
  7. SODIUM CHLORIDE [Concomitant]
     Active Substance: SODIUM CHLORIDE
     Indication: Fluid replacement
     Dosage: DOSE TEXT: 500 MILLILITER
     Route: 041
     Dates: start: 20230621, end: 20230621
  8. SODIUM CHLORIDE [Concomitant]
     Active Substance: SODIUM CHLORIDE
     Indication: Fluid replacement
     Dosage: DOSE TEXT: 200 MILLILITER
     Route: 041
     Dates: start: 20230918, end: 20230918
  9. AZATHIOPRINE [Concomitant]
     Active Substance: AZATHIOPRINE
     Indication: Crohn^s disease
     Dosage: 50 MILLIGRAM
     Route: 048
     Dates: start: 20221207
  10. SIMETHICONE (DIMETHICONE) [Concomitant]
     Active Substance: DIMETHICONE
     Indication: Colonoscopy
     Dosage: EMULSION?30 MILLILITER
     Route: 048
     Dates: start: 20230621, end: 20230621
  11. Polyethylene Glycol Electrolytes [Concomitant]
     Indication: Colonoscopy
     Dosage: 205.68 GRAM
     Route: 048
     Dates: start: 20230621, end: 20230621

REACTIONS (4)
  - Malnutrition [Recovered/Resolved]
  - Hypoproteinaemia [Not Recovered/Not Resolved]
  - Anaemia [Not Recovered/Not Resolved]
  - Abdominal pain [Not Recovered/Not Resolved]

NARRATIVE: CASE EVENT DATE: 20230519
